FAERS Safety Report 21361459 (Version 3)
Quarter: 2022Q4

REPORT INFORMATION
  Report Type: Report from Study
  Country: MX (occurrence: MX)
  Receive Date: 20220921
  Receipt Date: 20221013
  Transmission Date: 20230113
  Serious: Yes (Hospitalization)
  Sender: FDA-Public Use
  Company Number: MX-JNJFOC-20220940147

PATIENT
  Age: 72 Year
  Sex: Female
  Weight: 67.2 kg

DRUGS (22)
  1. AMIVANTAMAB [Suspect]
     Active Substance: AMIVANTAMAB
     Indication: Non-small cell lung cancer metastatic
     Route: 042
     Dates: start: 20220503
  2. INSULIN GLARGINE 100UI/ML [Concomitant]
     Indication: Diabetes mellitus
     Dosage: DOSE: 20
     Route: 058
     Dates: start: 20120101
  3. ACETAMINOPHEN [Concomitant]
     Active Substance: ACETAMINOPHEN
     Indication: Chest pain
     Route: 048
     Dates: start: 20220324
  4. BENZONATATE [Concomitant]
     Active Substance: BENZONATATE
     Indication: Cough
     Dosage: FREQUENCY: TID
     Route: 048
     Dates: start: 20220324
  5. ALPRAZOLAM [Concomitant]
     Active Substance: ALPRAZOLAM
     Indication: Insomnia
     Route: 048
     Dates: start: 20220324
  6. LACTULOSE 10GR/15ML [Concomitant]
     Indication: Constipation
     Route: 048
     Dates: start: 20220324
  7. DEXKETOPROFEN [Concomitant]
     Active Substance: DEXKETOPROFEN
     Indication: Chest pain
     Route: 048
     Dates: start: 20220324
  8. DOXYCYCLINE [Concomitant]
     Active Substance: DOXYCYCLINE
     Indication: Prophylaxis
     Dosage: FREQUENCY: 3 TIMES PER WEEK
     Route: 048
     Dates: start: 20220503
  9. DOXYCYCLINE [Concomitant]
     Active Substance: DOXYCYCLINE
     Indication: Infection prophylaxis
  10. AMLODIPINE [Concomitant]
     Active Substance: AMLODIPINE BESYLATE
     Indication: Hypertension
     Route: 048
     Dates: start: 20220506
  11. HYDROCHLOROTHIAZIDE [Concomitant]
     Active Substance: HYDROCHLOROTHIAZIDE
     Indication: Hypertension
     Route: 048
     Dates: start: 20220506
  12. PSYLLIUM PLANTAGO 35GR [Concomitant]
     Indication: Constipation
     Route: 048
     Dates: start: 20220517
  13. DILTIAZEM [Concomitant]
     Active Substance: DILTIAZEM
     Indication: Anal fissure
     Route: 054
     Dates: start: 20220517
  14. FLUCONAZOLE [Concomitant]
     Active Substance: FLUCONAZOLE
     Indication: Vulvovaginal candidiasis
     Dosage: FREQUENCY: OTHER
     Route: 048
     Dates: start: 20220713
  15. LOSARTAN [Concomitant]
     Active Substance: LOSARTAN
     Indication: Hypertension
     Route: 048
     Dates: start: 20220727
  16. FUROSEMIDE [Concomitant]
     Active Substance: FUROSEMIDE
     Indication: Oedema peripheral
     Dosage: FREQUENCY: TID
     Route: 048
     Dates: start: 20220727
  17. SPIRONOLACTONE [Concomitant]
     Active Substance: SPIRONOLACTONE
     Indication: Oedema peripheral
     Route: 048
     Dates: start: 20220727
  18. DAPAGLIFLOZIN [Concomitant]
     Active Substance: DAPAGLIFLOZIN
     Indication: Oedema peripheral
     Route: 048
     Dates: start: 20220727
  19. GABAPENTIN [Concomitant]
     Active Substance: GABAPENTIN
     Indication: Fatigue
     Route: 048
     Dates: start: 20220811
  20. RIVAROXABAN [Concomitant]
     Active Substance: RIVAROXABAN
     Indication: Thrombosis prophylaxis
     Route: 048
     Dates: start: 20220824
  21. ATORVASTATIN [Concomitant]
     Active Substance: ATORVASTATIN
     Indication: Prophylaxis
     Route: 048
     Dates: start: 20220913
  22. NEBIVOLOL [Concomitant]
     Active Substance: NEBIVOLOL
     Indication: Prophylaxis
     Route: 048
     Dates: start: 20220916

REACTIONS (1)
  - Pneumonia [Not Recovered/Not Resolved]

NARRATIVE: CASE EVENT DATE: 20221005
